FAERS Safety Report 12214975 (Version 2)
Quarter: 2016Q1

REPORT INFORMATION
  Report Type: Report from Study
  Country: IT (occurrence: IT)
  Receive Date: 20160328
  Receipt Date: 20160331
  Transmission Date: 20160526
  Serious: Yes (Death, Life-Threatening, Hospitalization)
  Sender: FDA-Public Use
  Company Number: IT-JNJFOC-20140414048

PATIENT
  Age: 72 Year
  Sex: Male
  Weight: 76 kg

DRUGS (10)
  1. METFORMIN [Concomitant]
     Active Substance: METFORMIN HYDROCHLORIDE
     Indication: HYPERGLYCAEMIA
     Route: 048
     Dates: start: 20140320
  2. TATIONIL [Concomitant]
     Dosage: ADMINISTERED ON DAYS EIGHT AND 15 OF CYCLE ONE
     Route: 065
     Dates: start: 20140208, end: 20140227
  3. TRABECTEDIN [Suspect]
     Active Substance: TRABECTEDIN
     Indication: PLEURAL MESOTHELIOMA MALIGNANT
     Dosage: CYCLES ONE TO THREE
     Route: 042
     Dates: start: 20140213, end: 20140327
  4. GLUTATHIONE SODIUM [Concomitant]
     Indication: PALLIATIVE CARE
     Route: 065
     Dates: start: 20140313, end: 20140313
  5. TRABECTEDIN [Suspect]
     Active Substance: TRABECTEDIN
     Route: 042
  6. LACIREX [Concomitant]
     Active Substance: LACIDIPINE
     Indication: HYPERTENSION
     Route: 048
     Dates: start: 20060101
  7. DEXAMETHASONE. [Concomitant]
     Active Substance: DEXAMETHASONE
     Dosage: ADMINISTERED SINCE CYCLE 1 OF TRABECTEDIN
     Route: 065
  8. SOLDESAM [Concomitant]
     Active Substance: DEXAMETHASONE
     Indication: ANTIINFLAMMATORY THERAPY
     Route: 048
     Dates: start: 20140320
  9. ALOXI [Concomitant]
     Active Substance: PALONOSETRON HYDROCHLORIDE
     Dosage: ADMINISTERED AT CYCLES ONE AND THREE
     Route: 065
  10. OTHER VITAMIN PRODUCTS, COMBINATIONS [Concomitant]
     Indication: VITAMIN SUPPLEMENTATION
     Route: 065
     Dates: start: 20140227

REACTIONS (2)
  - Sepsis [Fatal]
  - Dyspnoea [Fatal]

NARRATIVE: CASE EVENT DATE: 20140331
